FAERS Safety Report 7098547-5 (Version None)
Quarter: 2010Q4

REPORT INFORMATION
  Report Type: 
  Country: None (occurrence: None)
  Receive Date: 20101112
  Receipt Date: 20101029
  Transmission Date: 20110411
  Serious: Yes (Other)
  Sender: FDA-Public Use
  Company Number: PHHY2010BR74305

PATIENT
  Age: 53 Year
  Sex: Female

DRUGS (1)
  1. FORASEQ [Suspect]
     Indication: ASTHMA
     Dosage: 12/200 MCG, 1 CAPSULE OF EACH TREATMENT TWICE A DAY

REACTIONS (5)
  - CARDIAC DISORDER [None]
  - DRUG DOSE OMISSION [None]
  - DYSPNOEA [None]
  - FATIGUE [None]
  - VENOUS THROMBOSIS [None]
